FAERS Safety Report 10308587 (Version 1)
Quarter: 2014Q3

REPORT INFORMATION
  Report Type: Spontaneous
  Country: US (occurrence: US)
  Receive Date: 20140716
  Receipt Date: 20140716
  Transmission Date: 20150326
  Serious: Yes (Hospitalization)
  Sender: FDA-Public Use
  Company Number: PHHY2014US084188

PATIENT
  Age: 13 Year
  Sex: Female
  Weight: 59 kg

DRUGS (6)
  1. NAPROXEN. [Suspect]
     Active Substance: NAPROXEN
  2. DIPHENHYDRAMINE [Suspect]
     Active Substance: DIPHENHYDRAMINE
  3. PARACETAMOL [Suspect]
     Active Substance: ACETAMINOPHEN
  4. CITALOPRAM [Suspect]
     Active Substance: CITALOPRAM HYDROBROMIDE
  5. BUPROPION [Suspect]
     Active Substance: BUPROPION
  6. OMEPRAZOLE. [Suspect]
     Active Substance: OMEPRAZOLE

REACTIONS (23)
  - Electrocardiogram QT prolonged [Unknown]
  - Disorientation [Recovering/Resolving]
  - Tremor [Recovering/Resolving]
  - Anhidrosis [Recovering/Resolving]
  - Electrocardiogram QRS complex prolonged [Recovering/Resolving]
  - Hypertension [Unknown]
  - Tachypnoea [Recovering/Resolving]
  - Anxiety [Recovering/Resolving]
  - Hallucination [Recovering/Resolving]
  - Pyrexia [Recovering/Resolving]
  - Flushing [Recovering/Resolving]
  - Abnormal behaviour [Recovering/Resolving]
  - Overdose [Unknown]
  - Agitation [Recovering/Resolving]
  - Urinary retention [Unknown]
  - Gastrointestinal sounds abnormal [Unknown]
  - Myoclonus [Recovering/Resolving]
  - Toxicity to various agents [Unknown]
  - Rhabdomyolysis [Unknown]
  - Muscle rigidity [Recovering/Resolving]
  - Mydriasis [Recovering/Resolving]
  - Mucosal dryness [Recovering/Resolving]
  - Sinus tachycardia [Recovering/Resolving]
